FAERS Safety Report 25346559 (Version 1)
Quarter: 2025Q2

REPORT INFORMATION
  Report Type: Spontaneous
  Country: HU (occurrence: HU)
  Receive Date: 20250522
  Receipt Date: 20250522
  Transmission Date: 20250716
  Serious: Yes (Other)
  Sender: ROCHE
  Company Number: HU-ROCHE-10000286901

PATIENT

DRUGS (1)
  1. RITUXAN [Suspect]
     Active Substance: RITUXIMAB
     Indication: Product used for unknown indication
     Route: 065

REACTIONS (7)
  - Dyspepsia [Unknown]
  - Blood pressure increased [Unknown]
  - Respiratory disorder [Unknown]
  - Fatigue [Unknown]
  - Feeling hot [Unknown]
  - Feeling abnormal [Unknown]
  - Hypersomnia [Unknown]
